FAERS Safety Report 16356840 (Version 1)
Quarter: 2019Q2

REPORT INFORMATION
  Report Type: Spontaneous
  Country: CN (occurrence: CN)
  Receive Date: 20190527
  Receipt Date: 20190527
  Transmission Date: 20190711
  Serious: Yes (Other)
  Sender: FDA-Public Use
  Company Number: CN-ROCHE-2324322

PATIENT
  Age: 55 Year
  Sex: Male

DRUGS (17)
  1. OXALIPLATIN. [Concomitant]
     Active Substance: OXALIPLATIN
     Route: 065
     Dates: start: 20150525
  2. TEGAFUR [Concomitant]
     Active Substance: TEGAFUR
     Indication: NEOPLASM MALIGNANT
     Dosage: DAY1 TO DAY14
     Route: 048
  3. AI HENG [Concomitant]
     Active Substance: OXALIPLATIN
     Indication: NEOPLASM MALIGNANT
     Route: 065
     Dates: start: 20161202
  4. OTERACIL POTASSIUM [Concomitant]
     Active Substance: OTERACIL POTASSIUM
  5. CAPECITABINE. [Suspect]
     Active Substance: CAPECITABINE
     Indication: NEOPLASM MALIGNANT
     Route: 048
     Dates: start: 201504
  6. OXALIPLATIN. [Concomitant]
     Active Substance: OXALIPLATIN
     Indication: RECTAL CANCER
     Route: 065
     Dates: start: 20150312
  7. FLUOROURACIL. [Concomitant]
     Active Substance: FLUOROURACIL
     Indication: NEOPLASM MALIGNANT
     Route: 065
     Dates: start: 20170221
  8. BEVACIZUMAB. [Suspect]
     Active Substance: BEVACIZUMAB
     Indication: RECTAL CANCER
     Route: 048
     Dates: start: 20150401
  9. CAPECITABINE. [Suspect]
     Active Substance: CAPECITABINE
     Indication: RECTAL CANCER
     Route: 048
     Dates: start: 20150312, end: 20150402
  10. LIPIODOL ULTRA-FLUID [Concomitant]
     Route: 065
     Dates: start: 20161202
  11. LEUCOVORIN [FOLINIC ACID] [Concomitant]
     Active Substance: LEUCOVORIN
     Indication: NEOPLASM MALIGNANT
     Route: 065
     Dates: start: 20170221
  12. BEVACIZUMAB. [Suspect]
     Active Substance: BEVACIZUMAB
     Route: 048
     Dates: start: 20170221, end: 20180731
  13. RALTITREXED [Concomitant]
     Active Substance: RALTITREXED
     Indication: NEOPLASM MALIGNANT
     Route: 065
     Dates: start: 20161202
  14. BEVACIZUMAB. [Suspect]
     Active Substance: BEVACIZUMAB
     Indication: NEOPLASM MALIGNANT
     Route: 048
     Dates: start: 20150525
  15. IRINOTECAN [Concomitant]
     Active Substance: IRINOTECAN
     Indication: NEOPLASM MALIGNANT
     Route: 065
     Dates: start: 20170221
  16. GIMERACIL [Concomitant]
     Active Substance: GIMERACIL
  17. CAPECITABINE. [Suspect]
     Active Substance: CAPECITABINE
     Route: 048
     Dates: start: 20150525

REACTIONS (2)
  - Stress ulcer [Recovering/Resolving]
  - Bone marrow failure [Unknown]
